FAERS Safety Report 8201154-1 (Version None)
Quarter: 2012Q1

REPORT INFORMATION
  Report Type: 
  Country: None (occurrence: None)
  Receive Date: 20120307
  Receipt Date: 20120205
  Transmission Date: 20120608
  Serious: Yes (Death, Life-Threatening, Disabling, Other)
  Sender: FDA-Public Use
  Company Number: 2008US001246

PATIENT
  Age: 9 Year
  Sex: Female

DRUGS (29)
  1. VFEND [Concomitant]
  2. SOLU-MEDROL [Concomitant]
  3. NICARDIPINE HYDROCHLORIDE [Concomitant]
  4. SODIUM CHLORIDE 0.9% [Concomitant]
  5. ATRAXA-P (HYDROXYZINE HYDROCHLORIDE) [Concomitant]
  6. FOSCAVIR [Suspect]
     Indication: CYTOMEGALOVIRUS INFECTION
     Dosage: PARENTERAL
     Route: 051
     Dates: start: 20080415, end: 20080422
  7. TARGPOCID (TEICOPLANIN) [Suspect]
     Indication: INFECTION
     Dosage: PARENTERAL
     Route: 051
     Dates: start: 20080420, end: 20080425
  8. CAPILLARY STABLIZING AGENTS [Concomitant]
  9. AMOBAN (ZOPICLONE) [Concomitant]
  10. PROGRAF [Suspect]
     Indication: GRAFT VERSUS HOST DISEASE
     Dosage: 0.1 MG, UNKNOWN/D, PARENTERAL
     Route: 051
     Dates: end: 20080427
  11. ELEMENMIC (MINERALS NOS) [Concomitant]
  12. POTASSIUM CHLORIDE [Concomitant]
  13. OMEPRAL (OMPERAZOLE) [Concomitant]
  14. MORPHINE HYDROCHLORIDE (MORPHINE HYDROCHLORIDE) [Concomitant]
  15. URSO (URSODEXOYCHOLIC ACID) [Concomitant]
  16. DOPAMINE HYDROCHLORIDE [Concomitant]
  17. FIRSTCIN (CEFOZOPRAN HYDROCHLORIDE) [Concomitant]
  18. FULCALIQ 2 [Concomitant]
  19. NOVO HEPARIN CALCIUM (HEPARIN CALCIUM) [Concomitant]
  20. AMBISOME [Suspect]
     Indication: PYELONEPHRITIS FUNGAL
     Dosage: 49.2 MG, UID/QD, PARENTERAL; 50 MG, UID/QD, PARENTERAL
     Route: 051
     Dates: start: 20080423, end: 20080425
  21. AMBISOME [Suspect]
     Indication: PYELONEPHRITIS FUNGAL
     Dosage: 49.2 MG, UID/QD, PARENTERAL; 50 MG, UID/QD, PARENTERAL
     Route: 051
     Dates: start: 20080409, end: 20080422
  22. NEUTROGIN (LENOGRASTIM) [Suspect]
     Indication: NEUTROPENIA
     Dosage: 100 UG, UID/QD, IV NOS; DR, PARENTERAL
     Route: 042
     Dates: start: 20080415, end: 20080426
  23. NEUTROGIN (LENOGRASTIM) [Suspect]
     Indication: NEUTROPENIA
     Dosage: 100 UG, UID/QD, IV NOS; DR, PARENTERAL
     Route: 042
     Dates: start: 20080427, end: 20080430
  24. ANITVIRALS FOR SYSTEMIC USE (ANTIVIRALS FOR SYSTEMIC USE) [Suspect]
     Indication: VIRAL INFECTION
     Dosage: IV NOS; IV NOS; IV NOS
     Route: 042
     Dates: start: 20080506, end: 20080506
  25. ANITVIRALS FOR SYSTEMIC USE (ANTIVIRALS FOR SYSTEMIC USE) [Suspect]
     Indication: VIRAL INFECTION
     Dosage: IV NOS; IV NOS; IV NOS
     Route: 042
     Dates: start: 20080423, end: 20080423
  26. ANITVIRALS FOR SYSTEMIC USE (ANTIVIRALS FOR SYSTEMIC USE) [Suspect]
     Indication: VIRAL INFECTION
     Dosage: IV NOS; IV NOS; IV NOS
     Route: 042
     Dates: start: 20080510, end: 20080510
  27. SULFAMETHOXAZOLE AND TRIMETHOPRIM [Concomitant]
  28. ALPROSTADIL [Concomitant]
  29. ALBUMIN (HUMAN) [Concomitant]

REACTIONS (14)
  - CARDIAC ARREST [None]
  - VENTRICULAR EXTRASYSTOLES [None]
  - PULMONARY OEDEMA [None]
  - HAEMOGLOBIN DECREASED [None]
  - PLATELET COUNT DECREASED [None]
  - BLOOD BILIRUBIN INCREASED [None]
  - BLOOD POTASSIUM DECREASED [None]
  - DIALYSIS [None]
  - PLEURAL EFFUSION [None]
  - RESPIRATORY FAILURE [None]
  - RENAL FAILURE [None]
  - NEUROBLASTOMA RECURRENT [None]
  - WEIGHT INCREASED [None]
  - PULMONARY CONGESTION [None]
